FAERS Safety Report 21131540 (Version 1)
Quarter: 2022Q3

REPORT INFORMATION
  Report Type: Spontaneous
  Country: US (occurrence: US)
  Receive Date: 20220726
  Receipt Date: 20220726
  Transmission Date: 20221026
  Serious: Yes (Other)
  Sender: FDA-Public Use
  Company Number: US-SA-2022SA284265

PATIENT
  Age: 44 Year
  Sex: Male

DRUGS (1)
  1. LEMTRADA [Suspect]
     Active Substance: ALEMTUZUMAB
     Indication: Multiple sclerosis

REACTIONS (4)
  - Immunoglobulin G4 related disease [Unknown]
  - Lymphadenopathy [Unknown]
  - Swelling [Unknown]
  - Autoimmune disorder [Unknown]
